FAERS Safety Report 9476341 (Version 2)
Quarter: 2013Q3

REPORT INFORMATION
  Report Type: Spontaneous
  Country: JP (occurrence: JP)
  Receive Date: 20130826
  Receipt Date: 20130906
  Transmission Date: 20140515
  Serious: Yes (Hospitalization)
  Sender: FDA-Public Use
  Company Number: JP-JNJFOC-20130812493

PATIENT
  Age: 93 Year
  Sex: Female

DRUGS (8)
  1. RISPERDAL [Suspect]
     Indication: BEHAVIOURAL AND PSYCHIATRIC SYMPTOMS OF DEMENTIA
     Route: 048
  2. RISPERDAL [Suspect]
     Indication: BEHAVIOURAL AND PSYCHIATRIC SYMPTOMS OF DEMENTIA
     Route: 048
     Dates: end: 201308
  3. RENIVACE [Concomitant]
     Route: 048
  4. BAYASPIRIN [Concomitant]
     Route: 048
  5. ARTIST [Concomitant]
     Route: 048
  6. AMLODIPINE [Concomitant]
     Route: 048
  7. ALDACTONE A [Concomitant]
     Route: 048
  8. YOKUKAN-SAN [Concomitant]
     Route: 048

REACTIONS (2)
  - Pneumonia aspiration [Recovered/Resolved]
  - Off label use [Unknown]
